FAERS Safety Report 9741595 (Version 3)
Quarter: 2014Q1

REPORT INFORMATION
  Report Type: Report from Study
  Country: DE (occurrence: DE)
  Receive Date: 20131210
  Receipt Date: 20140228
  Transmission Date: 20141002
  Serious: Yes (Hospitalization, Other)
  Sender: FDA-Public Use
  Company Number: DE-ROCHE-1314842

PATIENT
  Age: 70 Year
  Sex: Female

DRUGS (7)
  1. TOCILIZUMAB [Suspect]
     Indication: RHEUMATOID ARTHRITIS
     Route: 065
     Dates: start: 201203
  2. TOCILIZUMAB [Suspect]
     Route: 065
     Dates: start: 201212
  3. TOCILIZUMAB [Suspect]
     Route: 065
     Dates: end: 20130218
  4. TOCILIZUMAB [Suspect]
     Route: 065
     Dates: end: 20130430
  5. METHOTREXATE [Suspect]
     Indication: RHEUMATOID ARTHRITIS
     Route: 065
     Dates: start: 201202
  6. L-THYROX [Concomitant]
     Route: 065
  7. IBUPROFEN [Concomitant]
     Route: 065

REACTIONS (4)
  - Angioedema [Recovered/Resolved]
  - Urticaria [Recovered/Resolved]
  - Fracture [Unknown]
  - Infection [Unknown]
